FAERS Safety Report 4983261-X (Version None)
Quarter: 2006Q2

REPORT INFORMATION
  Report Type: 
  Country: None (occurrence: None)
  Receive Date: 20060426
  Receipt Date: 20060403
  Transmission Date: 20061013
  Serious: Yes (Other)
  Sender: FDA-Public Use
  Company Number: ES-BRISTOL-MYERS SQUIBB COMPANY-13335591

PATIENT
  Sex: Male

DRUGS (2)
  1. ABILIFY [Suspect]
     Indication: PSYCHOTIC DISORDER
     Route: 048
  2. TRANKIMAZIN [Concomitant]

REACTIONS (4)
  - ASTHENIA [None]
  - BLOOD CREATINE PHOSPHOKINASE INCREASED [None]
  - FACIAL PALSY [None]
  - RHABDOMYOLYSIS [None]
